FAERS Safety Report 24018889 (Version 6)
Quarter: 2024Q3

REPORT INFORMATION
  Report Type: Spontaneous
  Country: US (occurrence: US)
  Receive Date: 20240627
  Receipt Date: 20240905
  Transmission Date: 20241016
  Serious: No
  Sender: ROCHE
  Company Number: US-ROCHE-3579728

PATIENT
  Age: 78 Year
  Sex: Female

DRUGS (1)
  1. AVASTIN [Suspect]
     Active Substance: BEVACIZUMAB
     Indication: Product used for unknown indication
     Route: 065

REACTIONS (15)
  - Urinary tract infection [Unknown]
  - Pain [Not Recovered/Not Resolved]
  - Skin exfoliation [Unknown]
  - Oral mucosal exfoliation [Unknown]
  - Lip exfoliation [Unknown]
  - Pain [Unknown]
  - Burning sensation [Unknown]
  - Pain in extremity [Unknown]
  - Rhinorrhoea [Unknown]
  - Skin fissures [Unknown]
  - Nail hypertrophy [Unknown]
  - Off label use [Unknown]
  - Eye disorder [Unknown]
  - Memory impairment [Unknown]
  - Hypoaesthesia [Unknown]

NARRATIVE: CASE EVENT DATE: 20230301
